FAERS Safety Report 5093489-9 (Version None)
Quarter: 2006Q3

REPORT INFORMATION
  Report Type: 
  Country: None (occurrence: None)
  Receive Date: 20060829
  Receipt Date: 20060817
  Transmission Date: 20061208
  Serious: Yes (Other)
  Sender: FDA-Public Use
  Company Number: 25638

PATIENT
  Age: 65 Year
  Sex: Male
  Weight: 108.4097 kg

DRUGS (7)
  1. NIASPAN [Suspect]
     Indication: DYSLIPIDAEMIA
     Dosage: 1500 MG QHS PO
     Route: 048
     Dates: start: 20060406, end: 20060809
  2. SIMVASTATIN [Suspect]
     Indication: DYSLIPIDAEMIA
     Dosage: 40 MG QHS PO
     Route: 048
     Dates: start: 20060406, end: 20060809
  3. ACIPHEX [Concomitant]
  4. ASPIRIN [Concomitant]
  5. NITROGLYCERIN [Concomitant]
  6. TOPROL-XL [Concomitant]
  7. ZOLOFT [Concomitant]

REACTIONS (26)
  - ABDOMINAL PAIN LOWER [None]
  - ALTERED VISUAL DEPTH PERCEPTION [None]
  - ARTHRALGIA [None]
  - BACTERIA URINE IDENTIFIED [None]
  - BLOOD URINE PRESENT [None]
  - DIARRHOEA [None]
  - DYSPHONIA [None]
  - EYE INFLAMMATION [None]
  - EYE SWELLING [None]
  - EYELID OEDEMA [None]
  - FATIGUE [None]
  - FLUSHING [None]
  - HALLUCINATION, AUDITORY [None]
  - HALLUCINATION, VISUAL [None]
  - HEADACHE [None]
  - LOCAL SWELLING [None]
  - MYALGIA [None]
  - PH URINE DECREASED [None]
  - POLLAKIURIA [None]
  - PRURITUS [None]
  - RASH [None]
  - SINUS CONGESTION [None]
  - SWELLING FACE [None]
  - VISION BLURRED [None]
  - VISUAL DISTURBANCE [None]
  - WHITE BLOOD CELLS URINE POSITIVE [None]
